FAERS Safety Report 17521244 (Version 1)
Quarter: 2020Q1

REPORT INFORMATION
  Report Type: Spontaneous
  Country: US (occurrence: US)
  Receive Date: 20200310
  Receipt Date: 20200310
  Transmission Date: 20200409
  Serious: No
  Sender: FDA-Public Use
  Company Number: None

PATIENT
  Age: 66 Year
  Sex: Female
  Weight: 58.5 kg

DRUGS (11)
  1. XALATAN [Concomitant]
     Active Substance: LATANOPROST
  2. MIRALAX [Concomitant]
     Active Substance: POLYETHYLENE GLYCOL 3350
  3. OMEPRAZOLE. [Concomitant]
     Active Substance: OMEPRAZOLE
  4. COLACE [Concomitant]
     Active Substance: DOCUSATE SODIUM
  5. TRAZODONE [Concomitant]
     Active Substance: TRAZODONE HYDROCHLORIDE
  6. URSODIOL. [Concomitant]
     Active Substance: URSODIOL
  7. LORAZEPAM. [Concomitant]
     Active Substance: LORAZEPAM
  8. EMGALITY [Suspect]
     Active Substance: GALCANEZUMAB-GNLM
     Indication: MIGRAINE
     Dosage: ?          QUANTITY:1 INJECTION(S);OTHER FREQUENCY:ONCE A MONTH;?
     Route: 058
     Dates: start: 20191111, end: 20200310
  9. BUPROPION. [Concomitant]
     Active Substance: BUPROPION
  10. SUMATRIPTAN. [Concomitant]
     Active Substance: SUMATRIPTAN
  11. PRESERVISION [Concomitant]
     Active Substance: MINERALS\VITAMINS

REACTIONS (4)
  - Injection site erythema [None]
  - Constipation [None]
  - Injection site pruritus [None]
  - Injection site reaction [None]

NARRATIVE: CASE EVENT DATE: 20200212
